FAERS Safety Report 10071329 (Version 1)
Quarter: 2014Q2

REPORT INFORMATION
  Report Type: Spontaneous
  Country: US (occurrence: US)
  Receive Date: 20140410
  Receipt Date: 20140410
  Transmission Date: 20141212
  Serious: Yes (Hospitalization, Other)
  Sender: FDA-Public Use
  Company Number: US-ACTAVIS-2014-06660

PATIENT
  Age: 61 Year
  Sex: Female

DRUGS (6)
  1. LEVOFLOXACIN (WATSON LABORATORIES) [Suspect]
     Indication: ARTHRITIS BACTERIAL
     Dosage: UNK
     Route: 065
  2. CEFEPIME (UNKNOWN) [Suspect]
     Indication: ARTHRITIS BACTERIAL
     Dosage: UNK
     Route: 065
  3. METOPROLOL [Concomitant]
     Indication: PRODUCT USED FOR UNKNOWN INDICATION
     Dosage: UNK
     Route: 065
  4. TACROLIMUS [Concomitant]
     Indication: PRODUCT USED FOR UNKNOWN INDICATION
     Dosage: UNK
     Route: 065
  5. COUMADIN                           /00014802/ [Concomitant]
     Indication: PRODUCT USED FOR UNKNOWN INDICATION
     Dosage: UNK
     Route: 065
  6. DOCUSATE SODIUM [Concomitant]
     Indication: PRODUCT USED FOR UNKNOWN INDICATION
     Dosage: UNK
     Route: 065

REACTIONS (3)
  - Dermatitis [Unknown]
  - Eczema [Unknown]
  - Lymphocytic infiltration [Unknown]
